FAERS Safety Report 20143503 (Version 1)
Quarter: 2021Q4

REPORT INFORMATION
  Report Type: Report from Study
  Country: US (occurrence: US)
  Receive Date: 20211203
  Receipt Date: 20211203
  Transmission Date: 20220303
  Serious: Yes (Hospitalization, Other)
  Sender: FDA-Public Use
  Company Number: US-BRISTOL-MYERS SQUIBB COMPANY-BMS-2021-128075

PATIENT
  Age: 58 Year
  Sex: Female
  Weight: 95.5 kg

DRUGS (4)
  1. NIVOLUMAB [Suspect]
     Active Substance: NIVOLUMAB
     Indication: Malignant melanoma
     Dosage: 834 MILLIGRAM
     Route: 042
     Dates: start: 20161011, end: 20171107
  2. IPILIMUMAB [Suspect]
     Active Substance: IPILIMUMAB
     Indication: Malignant melanoma
     Dosage: UNK
     Route: 042
     Dates: start: 20161011, end: 20161123
  3. DABRAFENIB [Suspect]
     Active Substance: DABRAFENIB
     Indication: Malignant melanoma
     Dosage: 18400 MILLIGRAM
     Route: 065
     Dates: start: 20160629, end: 20160916
  4. TRAMETINIB [Suspect]
     Active Substance: TRAMETINIB
     Indication: Malignant melanoma
     Dosage: 156 MILLIGRAM
     Route: 065
     Dates: start: 20160629, end: 20160919

REACTIONS (5)
  - Immune-mediated encephalopathy [Recovering/Resolving]
  - Respiratory failure [Recovered/Resolved]
  - Acute kidney injury [Recovering/Resolving]
  - Pyrexia [Unknown]
  - Cardiac failure [Recovered/Resolved]

NARRATIVE: CASE EVENT DATE: 20171114
